FAERS Safety Report 18986439 (Version 1)
Quarter: 2021Q1

REPORT INFORMATION
  Report Type: Spontaneous
  Country: US (occurrence: US)
  Receive Date: 20210308
  Receipt Date: 20210308
  Transmission Date: 20210420
  Serious: Yes (Other)
  Sender: FDA-Public Use
  Company Number: None

PATIENT
  Age: 52 Year
  Sex: Female
  Weight: 109.35 kg

DRUGS (8)
  1. VERSED [Suspect]
     Active Substance: MIDAZOLAM HYDROCHLORIDE
     Indication: CATARACT OPERATION
     Dosage: ?          QUANTITY:1 INJECTION(S);OTHER FREQUENCY:DURING 1 SURGERY;?
     Route: 042
  2. VITAMIN B COMPLEX [Concomitant]
     Active Substance: CYANOCOBALAMIN\DEXPANTHENOL\NIACINAMIDE\PYRIDOXINE HYDROCHLORIDE\RIBOFLAVIN 5^-PHOSPHATE SODIUM\THIAMINE HYDROCHLORIDE\VITAMIN B COMPLEX
  3. VERSED [Suspect]
     Active Substance: MIDAZOLAM HYDROCHLORIDE
     Indication: SEDATION
     Dosage: ?          QUANTITY:1 INJECTION(S);OTHER FREQUENCY:DURING 1 SURGERY;?
     Route: 042
  4. DIPRIVAN [Suspect]
     Active Substance: PROPOFOL
     Indication: SEDATION
     Dosage: ?          QUANTITY:1 INJECTION(S);OTHER FREQUENCY:DURING SURGERY;?
     Route: 042
  5. MAGNESIUM CITRATE. [Concomitant]
     Active Substance: MAGNESIUM CITRATE
  6. DIPRIVAN [Suspect]
     Active Substance: PROPOFOL
     Indication: CATARACT OPERATION
     Dosage: ?          QUANTITY:1 INJECTION(S);OTHER FREQUENCY:DURING SURGERY;?
     Route: 042
  7. TRAVATAN [Concomitant]
     Active Substance: TRAVOPROST
  8. SERPENTINA ROOT [Concomitant]

REACTIONS (1)
  - Nausea [None]

NARRATIVE: CASE EVENT DATE: 20210208
